FAERS Safety Report 8351409-5 (Version None)
Quarter: 2012Q2

REPORT INFORMATION
  Report Type: 
  Country: None (occurrence: None)
  Receive Date: 20120510
  Receipt Date: 20120503
  Transmission Date: 20120825
  Serious: Yes (Death, Life-Threatening, Hospitalization)
  Sender: FDA-Public Use
  Company Number: NL-ASTRAZENECA-2012SE28061

PATIENT
  Age: 25004 Day
  Sex: Male

DRUGS (25)
  1. FINASTERIDE AUROBINDO [Concomitant]
     Indication: BENIGN PROSTATIC HYPERPLASIA
     Route: 048
     Dates: end: 20120425
  2. FRAXIPARINE [Concomitant]
     Indication: THROMBOSIS PROPHYLAXIS
     Route: 058
     Dates: start: 20120423, end: 20120424
  3. DOBUTREX [Concomitant]
     Indication: HYPOTENSION
     Route: 042
     Dates: start: 20120423, end: 20120424
  4. NORADRENALIN [Concomitant]
     Indication: ANURIA
     Route: 042
     Dates: start: 20120423, end: 20120424
  5. METRONIDAZOLE [Concomitant]
     Indication: INFECTION
     Route: 042
     Dates: start: 20120423, end: 20120425
  6. MIDAZOLAM [Concomitant]
     Indication: RELAXATION THERAPY
     Route: 042
     Dates: start: 20120423, end: 20120423
  7. CEFUROXIME [Concomitant]
     Indication: INFECTION
     Route: 042
     Dates: start: 20120423, end: 20120425
  8. MORPHINE [Concomitant]
     Indication: PAIN
     Route: 042
     Dates: start: 20120423, end: 20120424
  9. FENTANYL CITRATE [Concomitant]
     Indication: PAIN
     Route: 042
     Dates: start: 20120423, end: 20120423
  10. PRIMPERAN TAB [Concomitant]
     Indication: NAUSEA
     Route: 042
     Dates: start: 20120423
  11. NORADRENALIN [Concomitant]
     Indication: HYPOTENSION
     Route: 042
     Dates: start: 20120423, end: 20120424
  12. MOVICOLON [Concomitant]
     Indication: CONSTIPATION
     Route: 048
     Dates: start: 20120423, end: 20120425
  13. ASPIRIN [Concomitant]
     Route: 048
     Dates: end: 20120425
  14. FLUMAZENIL [Concomitant]
     Indication: TOXICITY TO VARIOUS AGENTS
     Route: 042
     Dates: start: 20120423, end: 20120423
  15. FUROSEMIDE [Concomitant]
     Indication: DIURETIC THERAPY
     Route: 042
     Dates: start: 20120424, end: 20120426
  16. METOPROLOL TARTRATE [Concomitant]
     Indication: HYPERTENSION
     Route: 048
     Dates: end: 20120423
  17. ZOFIL [Concomitant]
     Indication: CORONARY ARTERY DISEASE
     Route: 048
  18. HYDROCORTISONE [Concomitant]
     Indication: NERVOUS SYSTEM DISORDER
     Route: 042
     Dates: start: 20120424, end: 20120425
  19. SMOFKABIVEN [Concomitant]
     Indication: NUTRITIONAL SUPPORT
     Route: 042
     Dates: start: 20120425, end: 20120426
  20. SIMVASTATIN [Concomitant]
     Indication: HYPERCHOLESTEROLAEMIA
     Route: 048
     Dates: end: 20120425
  21. PROPOFOL [Concomitant]
     Indication: PAIN
     Route: 042
     Dates: start: 20120423, end: 20120425
  22. ACETAMINOPHEN [Concomitant]
     Indication: PAIN
     Route: 042
     Dates: start: 20120423, end: 20120423
  23. ASPEGIC 1000 [Concomitant]
     Indication: CORONARY ARTERY DISEASE
     Route: 042
     Dates: start: 20120423, end: 20120423
  24. AZD6140 [Suspect]
     Indication: CORONARY ARTERY DISEASE
     Route: 048
     Dates: start: 20110701, end: 20120425
  25. PANTOPRAZOLE [Concomitant]
     Indication: HYPERCHLORHYDRIA
     Route: 048

REACTIONS (5)
  - ILIAC ARTERY OCCLUSION [None]
  - ULCER HAEMORRHAGE [None]
  - ANURIA [None]
  - GASTRIC ULCER [None]
  - DYSPNOEA [None]
